FAERS Safety Report 4365053-8 (Version None)
Quarter: 2004Q2

REPORT INFORMATION
  Report Type: 
  Country: None (occurrence: None)
  Receive Date: 20040521
  Receipt Date: 20040414
  Transmission Date: 20050107
  Serious: Yes (Hospitalization)
  Sender: FDA-Public Use
  Company Number: B01200400702

PATIENT
  Age: 71 Year
  Sex: Male

DRUGS (4)
  1. (OXALIPLATIN) - SOLUTION - 187 MG [Suspect]
     Indication: COLORECTAL CANCER
     Dosage: 187 MG Q2W (CUMULATIVE DOSE : 187 MG)
     Route: 042
     Dates: start: 20040405, end: 20040405
  2. (OXALIPLATIN) - SOLUTION - 187 MG [Suspect]
     Indication: METASTASES TO LIVER
     Dosage: 187 MG Q2W (CUMULATIVE DOSE : 187 MG)
     Route: 042
     Dates: start: 20040405, end: 20040405
  3. FLUOROURACIL [Suspect]
     Dosage: 400 MG/M2 BOLUS THEN 600 MG/M2 22 HOUR CONTINUOUS INFUSION ON D1 AND D2 Q2W (CUMULATIVE DOSE : 4400
     Route: 042
     Dates: start: 20040405, end: 20040407
  4. (LEUCOVORIN) - SOLUTION - 440 MG [Suspect]
     Dosage: 440 MG Q2W (CUMULATIVE DOSE : 880 MG)
     Route: 042
     Dates: start: 20040405, end: 20040406

REACTIONS (13)
  - ANGINA PECTORIS [None]
  - ARTERIOSPASM CORONARY [None]
  - BLOOD SODIUM DECREASED [None]
  - CORONARY ARTERY DISEASE [None]
  - CORONARY ARTERY STENOSIS [None]
  - ELECTROCARDIOGRAM ST SEGMENT ELEVATION [None]
  - HAEMOGLOBIN DECREASED [None]
  - MYOCARDIAL INFARCTION [None]
  - PCO2 ABNORMAL [None]
  - PLATELET COUNT DECREASED [None]
  - VASCULAR CALCIFICATION [None]
  - VENTRICULAR DYSFUNCTION [None]
  - WHITE BLOOD CELL COUNT DECREASED [None]
